FAERS Safety Report 22655388 (Version 1)
Quarter: 2023Q2

REPORT INFORMATION
  Report Type: Spontaneous
  Country: US (occurrence: US)
  Receive Date: 20230629
  Receipt Date: 20230629
  Transmission Date: 20230722
  Serious: No
  Sender: FDA-Public Use
  Company Number: US-PERRIGO-23US003267

PATIENT
  Sex: Female

DRUGS (2)
  1. MICONAZOLE 1 [Suspect]
     Active Substance: MICONAZOLE NITRATE
     Indication: Vulvovaginal mycotic infection
     Dosage: 1200 MG, SINGLE
     Route: 067
     Dates: start: 202303, end: 202303
  2. MICONAZOLE 1 [Suspect]
     Active Substance: MICONAZOLE NITRATE
     Indication: Vulvovaginal pruritus

REACTIONS (3)
  - Vulvovaginal pain [Unknown]
  - Condition aggravated [Unknown]
  - Vulvovaginal burning sensation [Unknown]

NARRATIVE: CASE EVENT DATE: 20230301
